FAERS Safety Report 5122507-4 (Version None)
Quarter: 2006Q4

REPORT INFORMATION
  Report Type: 
  Country: None (occurrence: None)
  Receive Date: 20061004
  Receipt Date: 20060920
  Transmission Date: 20070319
  Serious: Yes (Hospitalization)
  Sender: FDA-Public Use
  Company Number: 2006P1000328

PATIENT
  Age: 72 Year
  Sex: Male
  Weight: 100 kg

DRUGS (6)
  1. RETEPLASE [Suspect]
     Indication: ACUTE MYOCARDIAL INFARCTION
     Dosage: SEE IMAGE
     Route: 042
     Dates: start: 20041015, end: 20041015
  2. RETEPLASE [Suspect]
     Indication: ACUTE MYOCARDIAL INFARCTION
     Dosage: SEE IMAGE
     Route: 042
     Dates: start: 20041015, end: 20041015
  3. REOPRO [Suspect]
     Indication: ACUTE MYOCARDIAL INFARCTION
     Dosage: SEE IMAGE
     Route: 042
     Dates: start: 20041015, end: 20041015
  4. REOPRO [Suspect]
     Indication: ACUTE MYOCARDIAL INFARCTION
     Dosage: SEE IMAGE
     Route: 042
     Dates: start: 20041015, end: 20041015
  5. HEPARIN [Concomitant]
  6. ACE INHIBITOR [Concomitant]

REACTIONS (2)
  - CORONARY ARTERY STENOSIS [None]
  - EJECTION FRACTION DECREASED [None]
